FAERS Safety Report 17037774 (Version 1)
Quarter: 2019Q4

REPORT INFORMATION
  Report Type: Spontaneous
  Country: DE (occurrence: DE)
  Receive Date: 20191115
  Receipt Date: 20191115
  Transmission Date: 20200122
  Serious: Yes (Hospitalization, Other)
  Sender: FDA-Public Use
  Company Number: DE-SA-2019SA315127

PATIENT
  Age: 30 Year
  Sex: Male

DRUGS (4)
  1. ALEMTUZUMAB [Suspect]
     Active Substance: ALEMTUZUMAB
     Indication: RELAPSING-REMITTING MULTIPLE SCLEROSIS
     Dosage: UNK
     Route: 042
     Dates: start: 201412
  2. ALEMTUZUMAB [Suspect]
     Active Substance: ALEMTUZUMAB
     Dosage: UNK
     Route: 042
     Dates: start: 201512
  3. NATALIZUMAB [Concomitant]
     Active Substance: NATALIZUMAB
     Indication: RELAPSING-REMITTING MULTIPLE SCLEROSIS
     Dosage: 61 INFUSIONS
  4. INTERFERON BETA-1A [Concomitant]
     Active Substance: INTERFERON BETA-1A
     Indication: RELAPSING-REMITTING MULTIPLE SCLEROSIS

REACTIONS (20)
  - Abdominal pain [Recovered/Resolved]
  - Castleman^s disease [Recovered/Resolved]
  - Pericardial effusion [Recovered/Resolved]
  - Renal failure [Recovered/Resolved]
  - Fatigue [Recovered/Resolved]
  - Pyrexia [Recovered/Resolved]
  - Lymphadenopathy [Recovered/Resolved]
  - Thrombocytopenia [Recovered/Resolved]
  - Dyspnoea [Recovered/Resolved]
  - Chest pain [Recovered/Resolved]
  - Pleural effusion [Recovered/Resolved]
  - Hepatosplenomegaly [Recovered/Resolved]
  - Pancytopenia [Recovered/Resolved]
  - Myelofibrosis [Recovered/Resolved]
  - Polyserositis [Recovered/Resolved]
  - Ascites [Recovered/Resolved]
  - Generalised oedema [Recovered/Resolved]
  - Oedema [Recovered/Resolved]
  - Hypoalbuminaemia [Recovered/Resolved]
  - Basedow^s disease [Unknown]

NARRATIVE: CASE EVENT DATE: 201612
